FAERS Safety Report 5960459-5 (Version None)
Quarter: 2008Q4

REPORT INFORMATION
  Report Type: 
  Country: None (occurrence: None)
  Receive Date: 20081120
  Receipt Date: 20081117
  Transmission Date: 20090506
  Serious: No
  Sender: FDA-Public Use
  Company Number: US-B.I. PHARMACEUTICALS,INC./RIDGEFIELD-2008-BP-17457BP

PATIENT
  Sex: Male

DRUGS (11)
  1. SPIRIVA [Suspect]
     Indication: CHRONIC OBSTRUCTIVE PULMONARY DISEASE
     Dosage: 18MCG
     Route: 055
     Dates: start: 20081023, end: 20081114
  2. LASIX [Concomitant]
     Indication: CARDIAC DISORDER
  3. POTASSIUM CHLORIDE [Concomitant]
     Indication: CARDIAC DISORDER
  4. LIPITOR [Concomitant]
     Indication: BLOOD CHOLESTEROL INCREASED
  5. AVAPRO [Concomitant]
     Indication: HYPERTENSION
  6. ALLOPURINOL [Concomitant]
     Indication: GOUT
  7. SYNTHROID [Concomitant]
     Indication: HYPOTHYROIDISM
  8. COUMADIN [Concomitant]
     Indication: CARDIAC DISORDER
  9. RESTOR [Concomitant]
  10. INDOCIN [Concomitant]
     Indication: GOUT
  11. NITROGLYCERIN [Concomitant]
     Indication: CARDIAC DISORDER

REACTIONS (5)
  - DRY THROAT [None]
  - DYSPHONIA [None]
  - MUSCLE SPASMS [None]
  - OROPHARYNGEAL PAIN [None]
  - VISION BLURRED [None]
